FAERS Safety Report 21873751 (Version 4)
Quarter: 2023Q1

REPORT INFORMATION
  Report Type: Spontaneous
  Country: US (occurrence: US)
  Receive Date: 20230117
  Receipt Date: 20230306
  Transmission Date: 20230418
  Serious: No
  Sender: FDA-Public Use
  Company Number: US-Calliditas-2022CAL00643

PATIENT
  Age: 63 Year
  Sex: Female

DRUGS (10)
  1. TARPEYO [Suspect]
     Active Substance: BUDESONIDE
     Indication: IgA nephropathy
     Dosage: 16MG (4MG CAPSULES) DAILY
     Route: 048
     Dates: start: 20221028
  2. PROGESTERONE [Concomitant]
     Active Substance: PROGESTERONE
  3. TESTOSTERONE [Concomitant]
     Active Substance: TESTOSTERONE
  4. ESTROGENS [Concomitant]
     Active Substance: ESTROGENS
  5. NP THYROID [Concomitant]
     Active Substance: LEVOTHYROXINE\LIOTHYRONINE
  6. OLMESARTAN [Concomitant]
     Active Substance: OLMESARTAN
  7. HOMOCYSTEX PLUS [Concomitant]
  8. PRASTERONE [Concomitant]
     Active Substance: PRASTERONE
  9. CHOLECALCIFEROL [Concomitant]
     Active Substance: CHOLECALCIFEROL
  10. BERBERINE [Concomitant]
     Active Substance: BERBERINE

REACTIONS (6)
  - Sinusitis [Recovering/Resolving]
  - Oropharyngeal pain [Recovering/Resolving]
  - Cough [Recovering/Resolving]
  - Dysphonia [Recovering/Resolving]
  - Dry mouth [Unknown]
  - Alopecia [Not Recovered/Not Resolved]

NARRATIVE: CASE EVENT DATE: 20221215
